FAERS Safety Report 6761480-X (Version None)
Quarter: 2010Q2

REPORT INFORMATION
  Report Type: 
  Country: None (occurrence: None)
  Receive Date: 20100607
  Receipt Date: 20100526
  Transmission Date: 20101027
  Serious: Yes (Hospitalization, Other)
  Sender: FDA-Public Use
  Company Number: 2009AC000411

PATIENT
  Age: 66 Year
  Sex: Female
  Weight: 106.1417 kg

DRUGS (31)
  1. DIGOXIN [Suspect]
     Dosage: 0.25 MG;QD;PO
     Route: 048
     Dates: start: 20010101, end: 20080501
  2. DIGOXIN [Suspect]
     Dosage: .125 MG;QD;PO
     Route: 048
     Dates: start: 20080711, end: 20080726
  3. DIGOXIN [Suspect]
     Dosage: .250 MG;QD;PO
     Route: 048
     Dates: start: 20080728, end: 20080826
  4. DIGOXIN [Suspect]
     Dosage: .250 MG;QD
     Dates: start: 20090501
  5. ACTOS [Concomitant]
  6. MALEATE [Concomitant]
  7. FUROSEMIDE [Concomitant]
  8. ALLOPURINOL [Concomitant]
  9. LIPITOR [Concomitant]
  10. COREG [Concomitant]
  11. GLIPIZIDE [Concomitant]
  12. AMITRIPTYLINE [Concomitant]
  13. CALCITRIOL [Concomitant]
  14. SPIRONOLACTONE [Concomitant]
  15. ENALAPRIL MALEATE [Concomitant]
  16. ZOLPIDEM [Concomitant]
  17. LEVOTHYROXINE SODIUM [Concomitant]
  18. CARVEDILOL [Concomitant]
  19. AMOXICILLIN [Concomitant]
  20. JANUVIA [Concomitant]
  21. ZANTAC [Concomitant]
  22. NIACIN [Concomitant]
  23. ASPIRIN [Concomitant]
  24. TYLENOL [Concomitant]
  25. CLARITIN [Concomitant]
  26. ADALAT [Concomitant]
  27. IRON [Concomitant]
  28. NIACIN [Concomitant]
  29. LOVENOX [Concomitant]
  30. GLUCOPHAGE [Concomitant]
  31. VASOTEC [Concomitant]

REACTIONS (26)
  - ANHEDONIA [None]
  - ATRIOVENTRICULAR BLOCK SECOND DEGREE [None]
  - CARPAL TUNNEL SYNDROME [None]
  - CONFUSIONAL STATE [None]
  - DEPRESSION [None]
  - DYSPNOEA [None]
  - EMOTIONAL DISTRESS [None]
  - FATIGUE [None]
  - FLUID RETENTION [None]
  - GOITRE [None]
  - HYPERKALAEMIA [None]
  - INCORRECT DOSE ADMINISTERED [None]
  - MEMORY IMPAIRMENT [None]
  - MUSCLE SPASMS [None]
  - NAUSEA [None]
  - PARAESTHESIA [None]
  - RENAL FAILURE [None]
  - RESTLESS LEGS SYNDROME [None]
  - SLEEP APNOEA SYNDROME [None]
  - SNORING [None]
  - SOMNOLENCE [None]
  - THERAPEUTIC AGENT TOXICITY [None]
  - TREATMENT NONCOMPLIANCE [None]
  - VISUAL IMPAIRMENT [None]
  - VOMITING [None]
  - WEIGHT INCREASED [None]
